FAERS Safety Report 7240258-7 (Version None)
Quarter: 2011Q1

REPORT INFORMATION
  Report Type: 
  Country: None (occurrence: None)
  Receive Date: 20110124
  Receipt Date: 20110118
  Transmission Date: 20110831
  Serious: Yes (Hospitalization, Disabling, Other)
  Sender: FDA-Public Use
  Company Number: JP-PFIZER INC-2010168563

PATIENT
  Age: 79 Year
  Sex: Male

DRUGS (8)
  1. KINEDAK [Concomitant]
     Dosage: UNK
  2. MEIACT [Concomitant]
     Indication: UPPER RESPIRATORY TRACT INFLAMMATION
  3. ZITHROMAX [Suspect]
     Indication: UPPER RESPIRATORY TRACT INFECTION
     Dosage: 500 MG, 1X/DAY
     Route: 048
     Dates: start: 20101122, end: 20101124
  4. VALSARTAN [Concomitant]
     Indication: HYPERTENSION
     Dosage: 160 MG, 1X/DAY
     Route: 048
  5. ANPLAG [Concomitant]
     Dosage: 100 MG, 3X/DAY
  6. CONIEL [Concomitant]
     Dosage: 4 MG, 1X/DAY
  7. STARSIS [Concomitant]
     Dosage: UNK
     Dates: end: 20101124
  8. NATRIX [Concomitant]
     Dosage: UNK

REACTIONS (2)
  - PNEUMONIA [None]
  - RHABDOMYOLYSIS [None]
